FAERS Safety Report 8123613-2 (Version None)
Quarter: 2012Q1

REPORT INFORMATION
  Report Type: 
  Country: None (occurrence: None)
  Receive Date: 20120208
  Receipt Date: 20120202
  Transmission Date: 20120608
  Serious: Yes (Other)
  Sender: FDA-Public Use
  Company Number: PHEH2011US010362

PATIENT
  Sex: Male

DRUGS (2)
  1. EXJADE [Suspect]
     Indication: IRON METABOLISM DISORDER
     Dosage: 500 MG, QD
     Route: 048
  2. FERRIPROX [Concomitant]
     Dosage: UNK UKN, UNK
     Dates: start: 20111202

REACTIONS (7)
  - HAEMORRHAGIC DISORDER [None]
  - HAEMATEMESIS [None]
  - DRUG INEFFECTIVE [None]
  - CONSTIPATION [None]
  - NAUSEA [None]
  - HYPERTENSION [None]
  - SLEEP APNOEA SYNDROME [None]
